FAERS Safety Report 9407330 (Version 1)
Quarter: 2013Q3

REPORT INFORMATION
  Report Type: Report from Study
  Country: US (occurrence: US)
  Receive Date: 20130718
  Receipt Date: 20130718
  Transmission Date: 20140515
  Serious: Yes (Hospitalization)
  Sender: FDA-Public Use
  Company Number: US-JNJFOC-20130707497

PATIENT
  Age: 23 Year
  Sex: Female
  Weight: 54.43 kg

DRUGS (5)
  1. SIMPONI [Suspect]
     Indication: RHEUMATOID ARTHRITIS
     Route: 058
     Dates: start: 20130609
  2. RELAFEN [Concomitant]
     Indication: RHEUMATOID ARTHRITIS
     Route: 048
     Dates: start: 201301
  3. ZYRTEC [Concomitant]
     Indication: MULTIPLE ALLERGIES
     Route: 048
     Dates: start: 2003
  4. LOESTRIN 24 [Concomitant]
     Indication: HORMONE THERAPY
     Route: 048
     Dates: start: 2010
  5. NOVOLOG [Concomitant]
     Indication: TYPE 1 DIABETES MELLITUS
     Route: 058
     Dates: start: 2001

REACTIONS (6)
  - Appendicitis [Recovered/Resolved]
  - Device malfunction [Unknown]
  - Drug dose omission [Not Recovered/Not Resolved]
  - Injection site reaction [Recovered/Resolved]
  - Injury associated with device [Recovered/Resolved]
  - Device malfunction [Recovered/Resolved]
